FAERS Safety Report 11789585 (Version 1)
Quarter: 2015Q4

REPORT INFORMATION
  Report Type: Report from Study
  Country: US (occurrence: US)
  Receive Date: 20151201
  Receipt Date: 20151201
  Transmission Date: 20160305
  Serious: Yes (Hospitalization, Other)
  Sender: FDA-Public Use
  Company Number: US-BAYER-2015-329452

PATIENT
  Age: 46 Year
  Sex: Male
  Weight: 111.11 kg

DRUGS (7)
  1. ADEMPAS [Suspect]
     Active Substance: RIOCIGUAT
     Indication: PULMONARY ARTERIAL HYPERTENSION
     Dosage: 2.5 MG, UNK
  2. COUMADIN [Concomitant]
     Active Substance: WARFARIN SODIUM
  3. EPOPROSTENOL. [Suspect]
     Active Substance: EPOPROSTENOL
  4. ADEMPAS [Suspect]
     Active Substance: RIOCIGUAT
     Indication: PULMONARY ARTERIAL HYPERTENSION
     Dosage: UNK
     Route: 048
     Dates: start: 20150121
  5. ADEMPAS [Suspect]
     Active Substance: RIOCIGUAT
     Indication: PULMONARY ARTERIAL HYPERTENSION
     Dosage: 2.5 MG, TID
     Route: 048
  6. LETAIRIS [Concomitant]
     Active Substance: AMBRISENTAN
  7. ADEMPAS [Suspect]
     Active Substance: RIOCIGUAT
     Indication: PULMONARY ARTERIAL HYPERTENSION
     Dosage: 2.5 MG, TID
     Route: 048
     Dates: start: 20151022

REACTIONS (5)
  - Weight decreased [Unknown]
  - Nausea [None]
  - Hospitalisation [None]
  - Headache [None]
  - Unevaluable event [Unknown]

NARRATIVE: CASE EVENT DATE: 201511
